FAERS Safety Report 15689160 (Version 2)
Quarter: 2021Q1

REPORT INFORMATION
  Report Type: Spontaneous
  Country: DE (occurrence: DE)
  Receive Date: 20181205
  Receipt Date: 20210224
  Transmission Date: 20210419
  Serious: Yes (Hospitalization, Other)
  Sender: FDA-Public Use
  Company Number: DE-SA-2018SA300255

PATIENT
  Age: 68 Year
  Sex: Male

DRUGS (16)
  1. GABAPENTIN. [Suspect]
     Active Substance: GABAPENTIN
     Dosage: 2400 MG, QD
     Route: 065
  2. OXCARBAZEPINE. [Suspect]
     Active Substance: OXCARBAZEPINE
     Indication: TRIGEMINAL NEURALGIA
     Dosage: 600 MG, UNK,WEEK 8
     Route: 065
  3. AMITRIPTYLINE HYDROCHLORIDE. [Suspect]
     Active Substance: AMITRIPTYLINE HYDROCHLORIDE
     Dosage: 25 UNK
  4. TAPENTADOL HYDROCHLORIDE [Suspect]
     Active Substance: TAPENTADOL HYDROCHLORIDE
     Dosage: 100?100?200 MG (AFTER 8 MONTHS)
  5. DEXKETOPROFEN [Concomitant]
     Active Substance: DEXKETOPROFEN
     Indication: POST HERPETIC NEURALGIA
     Dosage: FOR 60 MINUTES
     Route: 050
  6. AMITRIPTYLINE HYDROCHLORIDE. [Suspect]
     Active Substance: AMITRIPTYLINE HYDROCHLORIDE
     Indication: TRIGEMINAL NEURALGIA
     Dosage: 20 MG, UNK
     Route: 065
  7. AMITRIPTYLINE HYDROCHLORIDE. [Suspect]
     Active Substance: AMITRIPTYLINE HYDROCHLORIDE
     Dosage: AMITRIPTYLINE 10 DROPS (WEEK 8)
  8. AMBROXOL [Suspect]
     Active Substance: AMBROXOL
     Dosage: 20 % OINTMENT
     Route: 061
  9. OXCARBAZEPINE. [Suspect]
     Active Substance: OXCARBAZEPINE
     Dosage: 300 MG, UNK 150 MG, 2X/DAY
  10. TAPENTADOL HYDROCHLORIDE [Suspect]
     Active Substance: TAPENTADOL HYDROCHLORIDE
     Indication: TRIGEMINAL NEURALGIA
     Dosage: 500 MG, 1X/DAY (150 ? 150 ? 200 MG)
     Route: 065
  11. GABAPENTIN. [Suspect]
     Active Substance: GABAPENTIN
     Dosage: 600?300?300 MG (WEEK 17)
  12. CAPSAICIN. [Suspect]
     Active Substance: CAPSAICIN
     Indication: POST HERPETIC NEURALGIA
     Dosage: 8%
     Route: 061
  13. GABAPENTIN. [Suspect]
     Active Substance: GABAPENTIN
     Dosage: GABAPENTIN 300?300?300
  14. GABAPENTIN. [Suspect]
     Active Substance: GABAPENTIN
     Indication: TRIGEMINAL NEURALGIA
     Dosage: 1800 MG/D
     Route: 065
  15. LIDOCAINE HYDROCHLORIDE. [Suspect]
     Active Substance: LIDOCAINE HYDROCHLORIDE
     Indication: TRIGEMINAL NEURALGIA
     Dosage: UNK UNK, UNK
     Route: 061
  16. HYDROMORPHONE [Suspect]
     Active Substance: HYDROMORPHONE
     Indication: TRIGEMINAL NEURALGIA
     Dosage: 8 MG, UNK 4 MG, 2X/DAY (4 ? 0 ? 4 MG)

REACTIONS (26)
  - Hypoaesthesia [Unknown]
  - Nasopharyngitis [Unknown]
  - Confusional state [Unknown]
  - Insomnia [Unknown]
  - Liver function test increased [Unknown]
  - Drug ineffective [Unknown]
  - Glaucoma [Unknown]
  - Osteoarthritis [Unknown]
  - Off label use [Unknown]
  - Intentional product use issue [Unknown]
  - Post herpetic neuralgia [Unknown]
  - Blood creatinine increased [Unknown]
  - Drug eruption [Unknown]
  - Sleep deficit [Recovered/Resolved]
  - Benign prostatic hyperplasia [Unknown]
  - Quality of life decreased [Unknown]
  - Depression [Unknown]
  - Sleep apnoea syndrome [Recovered/Resolved]
  - Fall [Unknown]
  - Application site erythema [Unknown]
  - Atrial fibrillation [Unknown]
  - Hyperaesthesia [Unknown]
  - Fatigue [Unknown]
  - Constipation [Unknown]
  - Application site pain [Unknown]
  - Therapeutic product effect incomplete [Unknown]
